FAERS Safety Report 8495083-6 (Version None)
Quarter: 2012Q3

REPORT INFORMATION
  Report Type: 
  Country: None (occurrence: None)
  Receive Date: 20120709
  Receipt Date: 20120629
  Transmission Date: 20120928
  Serious: Yes (Hospitalization, Other)
  Sender: FDA-Public Use
  Company Number: US-CELGENEUS-163-21880-12050638

PATIENT
  Sex: Female

DRUGS (9)
  1. REVLIMID [Suspect]
     Dosage: 5 MILLIGRAM
     Route: 048
     Dates: start: 20110223
  2. REVLIMID [Suspect]
     Dosage: 5 MILLIGRAM
     Route: 048
     Dates: start: 20110901
  3. PANTOPRAZOLE SODIUM [Concomitant]
     Route: 065
  4. REVLIMID [Suspect]
     Dosage: .5556 MILLIGRAM
     Route: 048
     Dates: start: 20120301
  5. LEVOTHYROXINE SODIUM [Concomitant]
     Route: 065
  6. HYDROXYZINE HCL [Concomitant]
     Route: 065
  7. OXYCODONE/ACETAMINOPHEN [Concomitant]
     Route: 065
  8. RENVELA [Concomitant]
     Route: 065
  9. MIDODRINE HYDROCHLORIDE [Concomitant]
     Route: 065

REACTIONS (2)
  - RENAL FAILURE [None]
  - ADVERSE DRUG REACTION [None]
